FAERS Safety Report 12192646 (Version 3)
Quarter: 2016Q2

REPORT INFORMATION
  Report Type: Spontaneous
  Country: GB (occurrence: GB)
  Receive Date: 20160318
  Receipt Date: 20160418
  Transmission Date: 20160815
  Serious: Yes (Other)
  Sender: FDA-Public Use
  Company Number: GB-PFIZER INC-2016157367

PATIENT
  Age: 78 Year
  Sex: Female
  Weight: 59 kg

DRUGS (6)
  1. PREGABALIN. [Suspect]
     Active Substance: PREGABALIN
     Indication: PANIC ATTACK
     Dosage: 150 MG, 2X/DAY
     Route: 048
     Dates: start: 201507, end: 201511
  2. PREGABALIN. [Suspect]
     Active Substance: PREGABALIN
     Dosage: 50 MG, 1X/DAY
     Route: 048
     Dates: end: 20151128
  3. DIAZEPAM. [Concomitant]
     Active Substance: DIAZEPAM
     Dosage: UNK
  4. GLUCOSAMINE SULPHATE [Concomitant]
     Active Substance: GLUCOSAMINE
     Dosage: UNK
  5. GINKGO BILOBA [Concomitant]
     Active Substance: GINKGO
     Dosage: UNK
  6. PREGABALIN. [Suspect]
     Active Substance: PREGABALIN
     Indication: ANXIETY
     Dosage: 50 MG, 2X/DAY
     Route: 048
     Dates: start: 20150414

REACTIONS (25)
  - Apathy [Not Recovered/Not Resolved]
  - Feeling of body temperature change [Recovering/Resolving]
  - Chills [Not Recovered/Not Resolved]
  - Vision blurred [Unknown]
  - Dizziness [Unknown]
  - Drug ineffective [Unknown]
  - Abdominal distension [Recovered/Resolved]
  - Hot flush [Unknown]
  - Anxiety [Not Recovered/Not Resolved]
  - Eye disorder [Recovered/Resolved]
  - Withdrawal syndrome [Unknown]
  - Lethargy [Not Recovered/Not Resolved]
  - Arthritis [Recovered/Resolved]
  - Bone pain [Unknown]
  - Blood pressure increased [Unknown]
  - Rash pruritic [Not Recovered/Not Resolved]
  - Memory impairment [Not Recovered/Not Resolved]
  - Dysgraphia [Unknown]
  - Diarrhoea [Not Recovered/Not Resolved]
  - Condition aggravated [Not Recovered/Not Resolved]
  - Hyperhidrosis [Not Recovered/Not Resolved]
  - Eye pain [Recovering/Resolving]
  - Abnormal weight gain [Recovering/Resolving]
  - Pain in extremity [Recovering/Resolving]
  - Malaise [Unknown]

NARRATIVE: CASE EVENT DATE: 2015
